FAERS Safety Report 10165422 (Version 1)
Quarter: 2014Q2

REPORT INFORMATION
  Report Type: Spontaneous
  Country: US (occurrence: US)
  Receive Date: 20140510
  Receipt Date: 20140510
  Transmission Date: 20141212
  Serious: No
  Sender: FDA-Public Use
  Company Number: US-BRISTOL-MYERS SQUIBB COMPANY-19832260

PATIENT
  Age: 61 Year
  Sex: Female
  Weight: 73.47 kg

DRUGS (9)
  1. BYDUREON [Suspect]
     Indication: TYPE 2 DIABETES MELLITUS
  2. METFORMIN HCL [Suspect]
     Dosage: 1DF:1000 UNITS NOS
  3. ATORVASTATIN [Concomitant]
  4. CALCIUM [Concomitant]
  5. LISINOPRIL [Concomitant]
     Dosage: 1DF:40 UNITS NOS
  6. AMLODIPINE BESYLATE [Concomitant]
     Dosage: 1DF:10 UNITS NOS
  7. TRIAMTERENE [Concomitant]
  8. TRIAMTERENE + HCTZ [Concomitant]
     Dosage: 1DF;75/50, 1/2 TABLET
  9. CARVEDILOL [Concomitant]
     Dosage: 1DF:3.125 UNITS NOS

REACTIONS (1)
  - Blood glucose increased [Unknown]
